FAERS Safety Report 6882867-0 (Version None)
Quarter: 2010Q3

REPORT INFORMATION
  Report Type: 
  Country: None (occurrence: None)
  Receive Date: 20100727
  Receipt Date: 20100716
  Transmission Date: 20110219
  Serious: Yes (Other)
  Sender: FDA-Public Use
  Company Number: DSU-2010-03455

PATIENT
  Sex: Female
  Weight: 58.9676 kg

DRUGS (2)
  1. BENICAR HCT [Suspect]
     Indication: HYPERTENSION
     Dosage: 40/12.5MG (QD)LPER ORAL
     Route: 048
     Dates: start: 20080101
  2. WELCHOL [Suspect]
     Indication: GASTROINTESTINAL DISORDER
     Dosage: 3750 MG (1875 MG, BID), PER ORAL
     Route: 048
     Dates: start: 20050101

REACTIONS (3)
  - GLAUCOMA [None]
  - HYPERTENSION [None]
  - THROAT TIGHTNESS [None]
